FAERS Safety Report 23737025 (Version 1)
Quarter: 2024Q2

REPORT INFORMATION
  Report Type: Spontaneous
  Country: ES (occurrence: ES)
  Receive Date: 20240412
  Receipt Date: 20240412
  Transmission Date: 20240716
  Serious: Yes (Hospitalization, Other)
  Sender: FDA-Public Use
  Company Number: ES-Accord-418294

PATIENT
  Age: 74 Year
  Sex: Female

DRUGS (1)
  1. MITOMYCIN [Suspect]
     Active Substance: MITOMYCIN
     Indication: Trabeculectomy
     Dosage: 2 MG/ ML FOR 2 MINUTES IN BOTH EYES
     Dates: start: 2014

REACTIONS (1)
  - Conjunctival bleb [Recovered/Resolved]
